FAERS Safety Report 9460658 (Version 2)
Quarter: 2013Q3

REPORT INFORMATION
  Report Type: Spontaneous
  Country: NL (occurrence: None)
  Receive Date: 20130813
  Receipt Date: 20130816
  Transmission Date: 20140515
  Serious: Yes (Other)
  Sender: FDA-Public Use
  Company Number: SYM-2013-08398

PATIENT
  Age: 69 Year
  Sex: Female

DRUGS (7)
  1. EFUDIX [Suspect]
     Indication: SKIN DISORDER
     Dosage: 1 DOSAGE FORMS, 1 D, CUTANEOUS
     Dates: start: 20130701, end: 20130716
  2. PHENPROCOUMON [Suspect]
     Indication: PRODUCT USED FOR UNKNOWN INDICATION
     Dosage: 1 DOSAGE FORMS, AS PRESCRIBED
  3. HYDROCHLOORTHIAZIDE [Concomitant]
  4. METOPROLOL SUCCINATE [Concomitant]
  5. TAMBOCOR [Concomitant]
  6. PANTOZOL [Concomitant]
  7. ATORVASTATIN [Concomitant]

REACTIONS (15)
  - Gastrointestinal disorder [None]
  - Diarrhoea [None]
  - Vomiting [None]
  - Abdominal distension [None]
  - Pyrexia [None]
  - Oral disorder [None]
  - Nasal inflammation [None]
  - Skin burning sensation [None]
  - Erythema [None]
  - International normalised ratio increased [None]
  - Drug interaction [None]
  - Stomatitis [None]
  - Drug interaction [None]
  - Facial pain [None]
  - Oral pain [None]
